FAERS Safety Report 12380456 (Version 2)
Quarter: 2016Q3

REPORT INFORMATION
  Report Type: Spontaneous
  Country: US (occurrence: US)
  Receive Date: 20160518
  Receipt Date: 20160726
  Transmission Date: 20161109
  Serious: No
  Sender: FDA-Public Use
  Company Number: US-PFIZER INC-2016247753

PATIENT
  Sex: Female

DRUGS (6)
  1. BENZYLPENICILLIN POTASSIUM [Suspect]
     Active Substance: PENICILLIN G POTASSIUM
  2. BACLOFEN. [Suspect]
     Active Substance: BACLOFEN
  3. PREDNISONE. [Suspect]
     Active Substance: PREDNISONE
  4. LEVOFLOXACIN. [Suspect]
     Active Substance: LEVOFLOXACIN
     Dosage: UNK
  5. LEXAPRO [Suspect]
     Active Substance: ESCITALOPRAM OXALATE
     Dosage: UNK
  6. INFLUENZA [Suspect]
     Active Substance: INFLUENZA VIRUS VACCINE

REACTIONS (1)
  - Drug hypersensitivity [Unknown]
